FAERS Safety Report 9458576 (Version 1)
Quarter: 2013Q3

REPORT INFORMATION
  Report Type: Spontaneous
  Country: PT (occurrence: PT)
  Receive Date: 20130814
  Receipt Date: 20130814
  Transmission Date: 20140515
  Serious: Yes (Life-Threatening)
  Sender: FDA-Public Use
  Company Number: PT-ROXANE LABORATORIES, INC.-2013-RO-01328RO

PATIENT
  Age: 41 Year
  Sex: Female

DRUGS (3)
  1. RISPERIDONE [Suspect]
     Indication: DEPRESSION
     Dosage: 4 MG
  2. VALPROATE [Suspect]
     Indication: MANIA
     Dosage: 500 MG
  3. VALPROATE [Suspect]
     Dosage: 1000 MG

REACTIONS (1)
  - Hyperammonaemic encephalopathy [Recovered/Resolved]
